FAERS Safety Report 10934744 (Version 2)
Quarter: 2015Q2

REPORT INFORMATION
  Report Type: Spontaneous
  Country: BE (occurrence: BE)
  Receive Date: 20150320
  Receipt Date: 20150522
  Transmission Date: 20150821
  Serious: Yes (Life-Threatening, Hospitalization)
  Sender: FDA-Public Use
  Company Number: BE-ELI_LILLY_AND_COMPANY-BE201503004945

PATIENT
  Sex: Female

DRUGS (9)
  1. LORMETAZEPAM [Suspect]
     Active Substance: LORMETAZEPAM
     Dosage: 2 MG, EACH EVENING
     Route: 065
  2. ABILIFY [Interacting]
     Active Substance: ARIPIPRAZOLE
     Indication: PRODUCT USED FOR UNKNOWN INDICATION
     Dosage: UNK
  3. DOMINAL                            /00002701/ [Suspect]
     Active Substance: ASPIRIN
     Dosage: UNK
  4. TRAZODONE [Suspect]
     Active Substance: TRAZODONE HYDROCHLORIDE
     Dosage: 100 MG, EACH EVENING
     Route: 065
  5. CYMBALTA [Interacting]
     Active Substance: DULOXETINE HYDROCHLORIDE
     Indication: PRODUCT USED FOR UNKNOWN INDICATION
     Dosage: 60MG, QD
     Route: 048
  6. LORMETAZEPAM [Suspect]
     Active Substance: LORMETAZEPAM
     Indication: PRODUCT USED FOR UNKNOWN INDICATION
     Dosage: UNK UNK, UNKNOWN
     Route: 065
  7. DOMINAL                            /00002701/ [Suspect]
     Active Substance: ASPIRIN
     Indication: PRODUCT USED FOR UNKNOWN INDICATION
     Dosage: 80 MG, UNKNOWN
     Route: 065
  8. TRAZODONE [Suspect]
     Active Substance: TRAZODONE HYDROCHLORIDE
     Indication: PRODUCT USED FOR UNKNOWN INDICATION
     Dosage: UNK UNK, UNKNOWN
     Route: 065
  9. VALTRAN                            /00628301/ [Concomitant]
     Dosage: UNK

REACTIONS (18)
  - CSF white blood cell count increased [Recovering/Resolving]
  - Normochromic normocytic anaemia [Recovering/Resolving]
  - Hypoglycaemia [Recovering/Resolving]
  - Tongue biting [Recovering/Resolving]
  - Folate deficiency [Recovering/Resolving]
  - Suicide attempt [Recovering/Resolving]
  - Mydriasis [Recovering/Resolving]
  - Vitamin B12 deficiency [Recovering/Resolving]
  - Rhabdomyolysis [Recovering/Resolving]
  - Hypotension [Recovering/Resolving]
  - Conversion disorder [Recovering/Resolving]
  - Tachypnoea [Recovering/Resolving]
  - Coma [Recovering/Resolving]
  - Toxicity to various agents [Recovering/Resolving]
  - Drug interaction [Recovering/Resolving]
  - Vitamin D deficiency [Recovering/Resolving]
  - Generalised tonic-clonic seizure [Recovering/Resolving]
  - Lactic acidosis [Recovering/Resolving]
